FAERS Safety Report 5777797-1 (Version None)
Quarter: 2008Q2

REPORT INFORMATION
  Report Type: 
  Country: None (occurrence: None)
  Receive Date: 20080601
  Receipt Date: 20080108
  Transmission Date: 20081010
  Serious: No
  Sender: FDA-Public Use
  Company Number: US200801001535

PATIENT
  Age: 59 Year
  Sex: Male
  Weight: 113.4 kg

DRUGS (10)
  1. BYETTA [Suspect]
     Indication: TYPE 2 DIABETES MELLITUS
     Dosage: 5 UG, 2/D, SUBCUTANEOUS
     Route: 058
     Dates: start: 20071101
  2. ACTOS /USA/ (PIOGLITAZONE HYDROCHLORIDE) [Concomitant]
  3. GLIMEPIRIDE [Concomitant]
  4. FORTAMET (METFORMIN HYDROCHLORIDE) [Concomitant]
  5. TOPAMAX [Concomitant]
  6. VYTORIN [Concomitant]
  7. PLAVIX [Concomitant]
  8. BENAZEPRIL HCL [Concomitant]
  9. PROTONIX [Concomitant]
  10. FAMOTIDINE [Concomitant]

REACTIONS (1)
  - ERECTILE DYSFUNCTION [None]
